FAERS Safety Report 10510222 (Version 1)
Quarter: 2014Q4

REPORT INFORMATION
  Report Type: Spontaneous
  Country: US (occurrence: None)
  Receive Date: 20141009
  Receipt Date: 20141009
  Transmission Date: 20150528
  Serious: Yes (Hospitalization)
  Sender: FDA-Public Use
  Company Number: None

PATIENT
  Age: 49 Year
  Sex: Male
  Weight: 90.9 kg

DRUGS (2)
  1. TECHNETIUM TC-99M MPI MDP [Suspect]
     Active Substance: TECHNETIUM TC-99M MEDRONATE
     Indication: SCAN MYOCARDIAL PERFUSION
     Dates: start: 20131125, end: 20131125
  2. TECHNETIUM TC-99M MPI MDP [Suspect]
     Active Substance: TECHNETIUM TC-99M MEDRONATE
     Indication: SCAN MYOCARDIAL PERFUSION

REACTIONS (1)
  - Angioedema [None]

NARRATIVE: CASE EVENT DATE: 20131127
